FAERS Safety Report 9544217 (Version 1)
Quarter: 2013Q3

REPORT INFORMATION
  Report Type: Spontaneous
  Country: US (occurrence: US)
  Receive Date: 20130923
  Receipt Date: 20130923
  Transmission Date: 20140515
  Serious: No
  Sender: FDA-Public Use
  Company Number: US-ASTRAZENECA-2013SE49427

PATIENT
  Age: 79 Year
  Sex: Male
  Weight: 65.3 kg

DRUGS (17)
  1. LISINOPRIL [Suspect]
     Indication: BLOOD PRESSURE ABNORMAL
     Route: 048
     Dates: start: 2013
  2. METOPROLOL [Suspect]
     Indication: BLOOD PRESSURE ABNORMAL
     Route: 048
     Dates: start: 201111
  3. CRESTOR [Suspect]
     Route: 048
  4. XARELTO [Suspect]
     Indication: ATRIAL FIBRILLATION
     Route: 048
     Dates: start: 201211
  5. XARELTO [Suspect]
     Indication: CEREBROVASCULAR ACCIDENT PROPHYLAXIS
     Route: 048
     Dates: start: 201211
  6. COLECALCIFEROL [Concomitant]
     Indication: BLOOD 1,25-DIHYDROXYCHOLECALCIFEROL DECREASED
  7. FOLIC ACID [Concomitant]
     Indication: FOLATE DEFICIENCY
  8. GRAPE SEED EXTRACT [Concomitant]
     Indication: CARDIAC DISORDER
  9. CARNOSINE [Concomitant]
     Indication: CARDIAC DISORDER
  10. LOVAZA(OMEGA 3 MARINE TRIGLYCERIDES) [Concomitant]
     Indication: CORONARY ARTERY DISEASE
  11. PROPRANOLOL [Concomitant]
     Indication: GASTRIC DISORDER
  12. POLICOSANOL [Concomitant]
     Indication: BLOOD PRESSURE ABNORMAL
  13. TIKOSYN [Concomitant]
     Indication: ATRIAL FIBRILLATION
  14. CYANOCOBALAMIN-TANNIN COMPLEX [Concomitant]
     Indication: VITAMIN B12 DEFICIENCY
  15. ALPHA LIPOIC ACID [Concomitant]
     Indication: FATTY ACID DEFICIENCY
  16. ASPIRIN [Concomitant]
     Indication: STENT PLACEMENT
  17. COQ10(UBIDECARENONE) [Concomitant]
     Indication: CARDIAC DISORDER

REACTIONS (19)
  - Muscle spasms [Unknown]
  - Balance disorder [Unknown]
  - Gait disturbance [Unknown]
  - Musculoskeletal discomfort [Unknown]
  - Injury [Unknown]
  - Haemorrhage [Unknown]
  - Purpura [Unknown]
  - Muscular weakness [Unknown]
  - Muscle enzyme increased [Unknown]
  - Muscle contractions involuntary [Unknown]
  - Fall [Unknown]
  - Asthenia [Unknown]
  - Fatigue [Unknown]
  - Dizziness [Unknown]
  - Paraesthesia [Unknown]
  - Hypotension [Unknown]
  - Hypoaesthesia [Unknown]
  - Headache [Unknown]
  - Paraesthesia [Unknown]
